FAERS Safety Report 6174299-8 (Version None)
Quarter: 2009Q2

REPORT INFORMATION
  Report Type: 
  Country: None (occurrence: None)
  Receive Date: 20090430
  Receipt Date: 20080507
  Transmission Date: 20091009
  Serious: No
  Sender: FDA-Public Use
  Company Number: US-ASTRAZENECA-2008UW09322

PATIENT
  Age: 64 Year
  Sex: Female
  Weight: 67.7 kg

DRUGS (9)
  1. NEXIUM [Suspect]
     Route: 048
     Dates: start: 20030101, end: 20070614
  2. SYNTHROID [Interacting]
     Indication: THYROIDECTOMY
     Dates: start: 19980101
  3. MULTI-VITAMINS [Concomitant]
  4. CALCIUM [Concomitant]
  5. ERGOCALCIFEROL [Concomitant]
  6. FAMCICLOVIR [Concomitant]
  7. ROSUVASTATIN CALCIUM [Concomitant]
  8. VITAMIN E [Concomitant]
  9. ASPIRIN [Concomitant]

REACTIONS (4)
  - DIZZINESS [None]
  - DRUG INTERACTION [None]
  - FLUSHING [None]
  - VERTIGO [None]
